FAERS Safety Report 11780852 (Version 1)
Quarter: 2015Q4

REPORT INFORMATION
  Report Type: Spontaneous
  Country: CZ (occurrence: CZ)
  Receive Date: 20151126
  Receipt Date: 20151126
  Transmission Date: 20160305
  Serious: Yes (Other)
  Sender: FDA-Public Use
  Company Number: CZ-ACCORD-035783

PATIENT
  Age: 71 Year
  Sex: Female

DRUGS (4)
  1. SULODEXIDE [Suspect]
     Active Substance: SULODEXIDE
     Indication: ANTIPLATELET THERAPY
     Dosage: 250 LSU
  2. CLOPIDOGREL [Suspect]
     Active Substance: CLOPIDOGREL BISULFATE
     Indication: ANTIPLATELET THERAPY
  3. ACETYLSALICYLIC ACID [Suspect]
     Active Substance: ASPIRIN
     Indication: ANTIPLATELET THERAPY
  4. INSULIN [Concomitant]
     Active Substance: INSULIN NOS
     Indication: DIABETES MELLITUS

REACTIONS (4)
  - Urosepsis [Unknown]
  - Intermittent claudication [Unknown]
  - Haemorrhage [Unknown]
  - Pain [Unknown]
